FAERS Safety Report 22794088 (Version 2)
Quarter: 2023Q4

REPORT INFORMATION
  Report Type: Spontaneous
  Country: US (occurrence: US)
  Receive Date: 20230807
  Receipt Date: 20231205
  Transmission Date: 20240110
  Serious: Yes (Other)
  Sender: FDA-Public Use
  Company Number: US-JNJFOC-20230810388

PATIENT
  Age: 8 Year
  Sex: Male

DRUGS (2)
  1. TYLENOL REGULAR STRENGTH [Suspect]
     Active Substance: ACETAMINOPHEN
     Indication: Headache
     Dosage: FIRST, SECOND AND THIRD TRIMESTER, 4-5 TIMES A WEEK
     Route: 064
     Dates: start: 200507, end: 200604
  2. ACETAMINOPHEN [Suspect]
     Active Substance: ACETAMINOPHEN
     Indication: Headache
     Dosage: FIRST, SECOND AND THIRD TRIMESTER, 4-5 TIMES A WEEK
     Route: 064
     Dates: start: 200507, end: 200604

REACTIONS (3)
  - Autism spectrum disorder [Unknown]
  - Foetal exposure during pregnancy [Unknown]
  - Attention deficit hyperactivity disorder [Unknown]

NARRATIVE: CASE EVENT DATE: 20150101
